FAERS Safety Report 12845969 (Version 1)
Quarter: 2016Q4

REPORT INFORMATION
  Report Type: Spontaneous
  Country: FR (occurrence: FR)
  Receive Date: 20161014
  Receipt Date: 20161014
  Transmission Date: 20170207
  Serious: Yes (Death, Hospitalization)
  Sender: FDA-Public Use
  Company Number: FR-BAXTER-2016BAX051267

PATIENT
  Age: 52 Year
  Sex: Female

DRUGS (4)
  1. SOLUPRED [Concomitant]
     Active Substance: PREDNISOLONE
     Indication: PREMEDICATION
     Dosage: SINGLE DOSE
     Route: 048
     Dates: start: 20150122
  2. ENDOXAN 1000 MG, POUDRE POUR SOLUTION INJECTABLE [Suspect]
     Active Substance: CYCLOPHOSPHAMIDE
     Indication: BREAST CANCER STAGE II
     Dosage: CYCLE 1, SINGLE DOSE, 961.2 MG
     Route: 042
     Dates: start: 20150122
  3. ZOPHREN [Concomitant]
     Active Substance: ONDANSETRON
     Indication: PREMEDICATION
     Dosage: DOSAGE FORM: ORAL LYOPHILISATE, SINGLE DOSE
     Route: 048
     Dates: start: 20150122
  4. TAXOTERE [Suspect]
     Active Substance: DOCETAXEL
     Indication: BREAST CANCER STAGE II
     Dosage: DOSAGE FORM: SOLUTION TO DILUTE FOR INFUSION, STRENGTH: 80 MG/4ML, CYCLE 1, SINGLE DOSE, 120.15 MG
     Route: 042
     Dates: start: 20150122

REACTIONS (3)
  - Agranulocytosis [Fatal]
  - Gastrointestinal disorder [Unknown]
  - Colitis [Fatal]

NARRATIVE: CASE EVENT DATE: 20150131
